FAERS Safety Report 5449131-8 (Version None)
Quarter: 2007Q3

REPORT INFORMATION
  Report Type: 
  Country: None (occurrence: None)
  Receive Date: 20070911
  Receipt Date: 20070904
  Transmission Date: 20080115
  Serious: Yes (Other)
  Sender: FDA-Public Use
  Company Number: US-GENENTECH-246691

PATIENT
  Sex: Male
  Weight: 84.807 kg

DRUGS (9)
  1. XOLAIR [Suspect]
     Indication: ASTHMA
     Dosage: 225 MG, Q2W
     Route: 058
     Dates: start: 20070701
  2. ADVAIR DISKUS 100/50 [Concomitant]
     Indication: ASTHMA
     Dosage: 1 UNK, BID
  3. THEOPHYLLINE [Concomitant]
     Indication: ASTHMA
     Dosage: 400 MG, BID
  4. CLARITIN [Concomitant]
     Indication: ASTHMA
     Dosage: 10 MG, PRN
  5. SINGULAIR [Concomitant]
     Indication: ASTHMA
     Dosage: 10 MG, QD
  6. PREDNISONE TAB [Concomitant]
     Indication: ASTHMA
     Dosage: 10 MG, QD
  7. PROSCAR [Concomitant]
     Indication: DRUG USE FOR UNKNOWN INDICATION
  8. FLOMAX [Concomitant]
     Indication: DRUG USE FOR UNKNOWN INDICATION
  9. NEXIUM [Concomitant]
     Indication: DRUG USE FOR UNKNOWN INDICATION
     Dosage: 40 UNK, QD

REACTIONS (3)
  - CHEST DISCOMFORT [None]
  - PHARYNGEAL OEDEMA [None]
  - URTICARIA [None]
